FAERS Safety Report 9646261 (Version 2)
Quarter: 2013Q4

REPORT INFORMATION
  Report Type: Spontaneous
  Country: IT (occurrence: IT)
  Receive Date: 20131025
  Receipt Date: 20131025
  Transmission Date: 20140711
  Serious: Yes (Hospitalization)
  Sender: FDA-Public Use
  Company Number: IT-009507513-1009ITA00027

PATIENT
  Age: 79 Year
  Sex: Male

DRUGS (8)
  1. SIMVASTATIN [Suspect]
     Indication: HYPERTENSION
     Dosage: 0.2 MG, UNK
     Route: 048
  2. SIMVASTATIN [Suspect]
     Indication: CORONARY ARTERY DISEASE
     Dosage: 0.20 MG, QD
     Route: 048
  3. RAMIPRIL [Concomitant]
     Indication: CORONARY ARTERY DISEASE
  4. RAMIPRIL [Concomitant]
     Indication: HYPERTENSION
  5. MK-9359 [Concomitant]
     Indication: HYPERTENSION
  6. MK-9359 [Concomitant]
     Indication: CORONARY ARTERY DISEASE
  7. ASPIRIN [Concomitant]
     Indication: CORONARY ARTERY DISEASE
  8. ASPIRIN [Concomitant]
     Indication: HYPERTENSION

REACTIONS (1)
  - Hypersensitivity vasculitis [Recovered/Resolved]
